FAERS Safety Report 5099462-9 (Version None)
Quarter: 2006Q3

REPORT INFORMATION
  Report Type: 
  Country: None (occurrence: None)
  Receive Date: 20060908
  Receipt Date: 20060828
  Transmission Date: 20061208
  Serious: Yes (Death, Hospitalization)
  Sender: FDA-Public Use
  Company Number: US-JNJFOC-20060802397

PATIENT
  Sex: Male
  Weight: 85.3 kg

DRUGS (9)
  1. REMICADE [Suspect]
     Route: 042
  2. REMICADE [Suspect]
     Route: 042
  3. REMICADE [Suspect]
     Indication: COLITIS ULCERATIVE
     Route: 042
  4. EXTRA STRENGTH TYLENOL [Suspect]
  5. EXTRA STRENGTH TYLENOL [Suspect]
     Indication: TESTICULAR PAIN
  6. AZATHIOPRINE [Suspect]
     Indication: GASTROINTESTINAL DISORDER
     Route: 048
  7. COLAZAL [Suspect]
     Indication: DRUG USE FOR UNKNOWN INDICATION
  8. DOXYCYCLINE [Suspect]
     Indication: ORCHITIS
  9. ADVIL [Concomitant]

REACTIONS (5)
  - DIALYSIS [None]
  - HEPATIC FAILURE [None]
  - ORCHITIS [None]
  - OVERDOSE [None]
  - RENAL FAILURE [None]
